FAERS Safety Report 12852099 (Version 1)
Quarter: 2016Q4

REPORT INFORMATION
  Report Type: Spontaneous
  Country: US (occurrence: US)
  Receive Date: 20161014
  Receipt Date: 20161014
  Transmission Date: 20170207
  Serious: No
  Sender: FDA-Public Use
  Company Number: None

PATIENT
  Age: 29 Year
  Sex: Female
  Weight: 59.4 kg

DRUGS (7)
  1. VYVANSE [Suspect]
     Active Substance: LISDEXAMFETAMINE DIMESYLATE
     Indication: BINGE EATING
     Dosage: OTHER ORAL
     Route: 048
     Dates: start: 20160716, end: 20161014
  2. XANAX [Concomitant]
     Active Substance: ALPRAZOLAM
  3. AMBIEN [Concomitant]
     Active Substance: ZOLPIDEM TARTRATE
  4. VYVANSE [Concomitant]
     Active Substance: LISDEXAMFETAMINE DIMESYLATE
  5. PROBIOTIC [Concomitant]
     Active Substance: PROBIOTICS NOS
  6. ZOLOFT [Concomitant]
     Active Substance: SERTRALINE HYDROCHLORIDE
  7. WOMEN^S ONE A DAY [Concomitant]

REACTIONS (4)
  - Acne cystic [None]
  - Amenorrhoea [None]
  - Menstruation delayed [None]
  - Anxiety [None]

NARRATIVE: CASE EVENT DATE: 20160820
